FAERS Safety Report 4950101-4 (Version None)
Quarter: 2006Q1

REPORT INFORMATION
  Report Type: 
  Country: None (occurrence: None)
  Receive Date: 20060320
  Receipt Date: 20060320
  Transmission Date: 20060701
  Serious: Yes (Other)
  Sender: FDA-Public Use
  Company Number: None

PATIENT
  Sex: Female
  Weight: 74.8435 kg

DRUGS (1)
  1. BYETTA [Suspect]
     Indication: DIABETES MELLITUS NON-INSULIN-DEPENDENT
     Dosage: 5 MCG  TWICE A DAY  SQ
     Route: 058
     Dates: start: 20051001, end: 20060317

REACTIONS (3)
  - INJECTION SITE DISCOLOURATION [None]
  - INJECTION SITE HAEMORRHAGE [None]
  - INJECTION SITE URTICARIA [None]
